FAERS Safety Report 5006974-2 (Version None)
Quarter: 2006Q2

REPORT INFORMATION
  Report Type: 
  Country: None (occurrence: None)
  Receive Date: 20060517
  Receipt Date: 20060506
  Transmission Date: 20061013
  Serious: Yes (Other)
  Sender: FDA-Public Use
  Company Number: 2006060404

PATIENT
  Sex: Female

DRUGS (1)
  1. ZYVOX [Suspect]
     Indication: ILL-DEFINED DISORDER

REACTIONS (4)
  - MALAISE [None]
  - PAIN [None]
  - SPEECH DISORDER [None]
  - THROAT TIGHTNESS [None]
